FAERS Safety Report 5088472-3 (Version None)
Quarter: 2006Q3

REPORT INFORMATION
  Report Type: 
  Country: None (occurrence: None)
  Receive Date: 20060823
  Receipt Date: 20060823
  Transmission Date: 20061208
  Serious: Yes (Life-Threatening, Hospitalization, Disabling, Other)
  Sender: FDA-Public Use
  Company Number: None

PATIENT
  Sex: Female
  Weight: 83.4619 kg

DRUGS (1)
  1. BYETTA [Suspect]
     Indication: DIABETES MELLITUS NON-INSULIN-DEPENDENT
     Dosage: 5 MCG  EVERY 12 HRS   INJECTABLE
     Dates: start: 20060101, end: 20060710

REACTIONS (4)
  - CELLULITIS [None]
  - IMPAIRED HEALING [None]
  - NEUTROPENIA [None]
  - VASCULITIS [None]
